FAERS Safety Report 5739033-1 (Version None)
Quarter: 2008Q2

REPORT INFORMATION
  Report Type: 
  Country: None (occurrence: None)
  Receive Date: 20080515
  Receipt Date: 20080515
  Transmission Date: 20081010
  Serious: Yes (Hospitalization)
  Sender: FDA-Public Use
  Company Number: None

PATIENT
  Age: 4 Year
  Sex: Female
  Weight: 16.2 kg

DRUGS (2)
  1. HEPARIN [Suspect]
     Indication: CATHETER THROMBOSIS
     Dosage: 5ML IV; 5 DOSES
     Route: 042
     Dates: start: 20080326, end: 20080328
  2. HEPARIN [Suspect]
     Indication: CONVULSION
     Dosage: 5ML IV; 5 DOSES
     Route: 042
     Dates: start: 20080326, end: 20080328

REACTIONS (6)
  - ACUTE RESPIRATORY DISTRESS SYNDROME [None]
  - CATHETER RELATED COMPLICATION [None]
  - DISEASE RECURRENCE [None]
  - FEBRILE CONVULSION [None]
  - HYPOTENSION [None]
  - PHARMACEUTICAL PRODUCT COMPLAINT [None]
